FAERS Safety Report 5672871-2 (Version None)
Quarter: 2008Q1

REPORT INFORMATION
  Report Type: 
  Country: None (occurrence: None)
  Receive Date: 20080319
  Receipt Date: 20071129
  Transmission Date: 20080703
  Serious: No
  Sender: FDA-Public Use
  Company Number: US-ASTRAZENECA-2007UW27354

PATIENT
  Age: 74 Year
  Sex: Male
  Weight: 85.7 kg

DRUGS (7)
  1. SYMBICORT [Suspect]
     Indication: DYSPNOEA
     Dosage: 160/4.5 UG 2 DF BID
     Route: 055
  2. FUROSEMIDE [Concomitant]
  3. METFORMIN HCL [Concomitant]
  4. WARFARIN SODIUM [Concomitant]
  5. LISINOPRIL [Concomitant]
  6. DIGOXIN [Concomitant]
  7. AMIODARONE HCL [Concomitant]

REACTIONS (1)
  - BLISTER [None]
